FAERS Safety Report 17278341 (Version 1)
Quarter: 2020Q1

REPORT INFORMATION
  Report Type: Spontaneous
  Country: JP (occurrence: JP)
  Receive Date: 20200116
  Receipt Date: 20200116
  Transmission Date: 20200409
  Serious: Yes (Other)
  Sender: FDA-Public Use
  Company Number: NVSJ2019JP006547

PATIENT
  Age: 13 Year
  Sex: Female

DRUGS (1)
  1. ARRANON [Suspect]
     Active Substance: NELARABINE
     Indication: PRODUCT USED FOR UNKNOWN INDICATION
     Dosage: UNK
     Route: 042
     Dates: start: 201912, end: 201912

REACTIONS (3)
  - Vomiting [Unknown]
  - Neuropathy peripheral [Unknown]
  - Gastrointestinal hypomotility [Unknown]
